FAERS Safety Report 7115333-8 (Version None)
Quarter: 2010Q4

REPORT INFORMATION
  Report Type: 
  Country: None (occurrence: None)
  Receive Date: 20101122
  Receipt Date: 20101110
  Transmission Date: 20110411
  Serious: Yes (Other)
  Sender: FDA-Public Use
  Company Number: ES-TYCO HEALTHCARE/MALLINCKRODT-T201002299

PATIENT
  Age: 73 Year
  Sex: Female

DRUGS (5)
  1. EXALGO [Suspect]
     Indication: PAIN
     Dosage: 8 MG, QD
     Route: 048
     Dates: start: 20101021, end: 20101023
  2. LYRICA [Concomitant]
     Indication: NEURALGIA
     Dosage: ONE IN 12 HOURS
     Dates: start: 20100901
  3. PARACETAMOL [Concomitant]
     Indication: NEURALGIA
     Dosage: 650 MG, ONE IN 8 HOURS
     Dates: start: 20100901
  4. TEGRETOL [Concomitant]
     Indication: NEURALGIA
     Dosage: ONE IN ONE DAY
     Dates: start: 20100901
  5. DACORTIN [Concomitant]
     Indication: APLASIA PURE RED CELL
     Dosage: 30 MG, ONE IN 12 HOUR
     Dates: start: 20100901

REACTIONS (2)
  - CONFUSIONAL STATE [None]
  - HEPATIC ENCEPHALOPATHY [None]
